FAERS Safety Report 24330744 (Version 1)
Quarter: 2024Q3

REPORT INFORMATION
  Report Type: Spontaneous
  Country: US (occurrence: US)
  Receive Date: 20240918
  Receipt Date: 20240918
  Transmission Date: 20241017
  Serious: No
  Sender: SANOFI AVENTIS
  Company Number: US-SA-2024SA266923

PATIENT
  Age: 51 Year
  Sex: Male
  Weight: 145 kg

DRUGS (2)
  1. DUPIXENT [Suspect]
     Active Substance: DUPILUMAB
     Indication: Asthmatic crisis
     Dosage: 300 MG, QOW
     Route: 058
  2. DUPIXENT [Suspect]
     Active Substance: DUPILUMAB
     Indication: Asthma

REACTIONS (6)
  - Ear discomfort [Unknown]
  - Head discomfort [Unknown]
  - Wheezing [Unknown]
  - Muscle strain [Unknown]
  - Cough [Unknown]
  - Drug ineffective [Unknown]
